APPROVED DRUG PRODUCT: ALPRAZOLAM
Active Ingredient: ALPRAZOLAM
Strength: 0.5MG
Dosage Form/Route: TABLET;ORAL
Application: A078491 | Product #002
Applicant: OXFORD PHARMACEUTICALS LLC
Approved: Sep 25, 2008 | RLD: No | RS: No | Type: DISCN